FAERS Safety Report 11357713 (Version 1)
Quarter: 2015Q3

REPORT INFORMATION
  Report Type: Spontaneous
  Country: US (occurrence: US)
  Receive Date: 20150803
  Receipt Date: 20150803
  Transmission Date: 20151125
  Serious: No
  Sender: FDA-Public Use
  Company Number: US-ELI_LILLY_AND_COMPANY-US201203002394

PATIENT
  Sex: Female

DRUGS (1)
  1. STRATTERA [Suspect]
     Active Substance: ATOMOXETINE HYDROCHLORIDE
     Dosage: 40 MG, UNK
     Dates: start: 20120302, end: 20120307

REACTIONS (5)
  - Hot flush [Unknown]
  - Visual impairment [Unknown]
  - Tunnel vision [Unknown]
  - Dizziness [Unknown]
  - Asthenia [Unknown]
